FAERS Safety Report 5853106-4 (Version None)
Quarter: 2008Q3

REPORT INFORMATION
  Report Type: 
  Country: None (occurrence: None)
  Receive Date: 20080821
  Receipt Date: 20080813
  Transmission Date: 20090109
  Serious: Yes (Hospitalization)
  Sender: FDA-Public Use
  Company Number: JP-GILEAD-2008-0017757

PATIENT
  Sex: Male

DRUGS (6)
  1. VIREAD [Suspect]
     Indication: HIV INFECTION
     Route: 048
     Dates: start: 20050802, end: 20071213
  2. EPIVIR [Concomitant]
     Indication: HIV INFECTION
     Route: 048
     Dates: start: 20050722, end: 20050802
  3. EPIVIR [Concomitant]
     Route: 048
     Dates: start: 20050802, end: 20071213
  4. STOKRIN [Concomitant]
     Indication: HIV INFECTION
     Route: 048
     Dates: start: 20051209, end: 20070711
  5. REYATAZ [Concomitant]
     Indication: HIV INFECTION
     Route: 048
     Dates: start: 20050622, end: 20070510
  6. NORVIR [Concomitant]
     Indication: HIV INFECTION
     Route: 048
     Dates: start: 20050622, end: 20070510

REACTIONS (1)
  - DIABETES MELLITUS [None]
